FAERS Safety Report 12798053 (Version 2)
Quarter: 2016Q4

REPORT INFORMATION
  Report Type: Spontaneous
  Country: US (occurrence: US)
  Receive Date: 20160930
  Receipt Date: 20161115
  Transmission Date: 20170207
  Serious: No
  Sender: FDA-Public Use
  Company Number: US-GLAXOSMITHKLINE-US2016142464

PATIENT
  Sex: Female
  Weight: 94.33 kg

DRUGS (1)
  1. VENTOLIN HFA [Suspect]
     Active Substance: ALBUTEROL SULFATE
     Indication: PRODUCT USED FOR UNKNOWN INDICATION
     Dosage: 2 PUFF(S), EVERY 4 HOURS, PRN
     Route: 055

REACTIONS (3)
  - Product cleaning inadequate [Unknown]
  - Wrong technique in product usage process [Unknown]
  - Device use error [Unknown]
